FAERS Safety Report 19678792 (Version 1)
Quarter: 2021Q3

REPORT INFORMATION
  Report Type: Spontaneous
  Country: US (occurrence: US)
  Receive Date: 20210809
  Receipt Date: 20210809
  Transmission Date: 20211014
  Serious: No
  Sender: FDA-Public Use
  Company Number: None

PATIENT
  Age: 31 Year
  Sex: Female
  Weight: 72 kg

DRUGS (1)
  1. MUPIROCIN OINTMENT [Suspect]
     Active Substance: MUPIROCIN
     Indication: INFECTION PROPHYLAXIS
     Dosage: ?          QUANTITY:1 ^SMALL AMOUNT^;?
     Route: 061
     Dates: start: 20200802, end: 20200809

REACTIONS (2)
  - Application site pain [None]
  - Application site swelling [None]

NARRATIVE: CASE EVENT DATE: 20210808
